FAERS Safety Report 5382746-4 (Version None)
Quarter: 2007Q2

REPORT INFORMATION
  Report Type: 
  Country: None (occurrence: None)
  Receive Date: 20070629
  Receipt Date: 20070305
  Transmission Date: 20071010
  Serious: Yes (Hospitalization)
  Sender: FDA-Public Use
  Company Number: US200703000905

PATIENT
  Age: 78 Year
  Sex: Male

DRUGS (5)
  1. HUMALOG [Suspect]
     Indication: DIABETES MELLITUS
     Dosage: 45 U, DAILY (1/D)
     Dates: start: 20040101
  2. LANTUS [Concomitant]
  3. WARFARIN SODIUM [Concomitant]
  4. LIPITOR [Concomitant]
  5. ZETIA [Concomitant]

REACTIONS (3)
  - HAEMORRHAGE [None]
  - MYOPATHY [None]
  - MYOSITIS [None]
